FAERS Safety Report 4965409-6 (Version None)
Quarter: 2006Q2

REPORT INFORMATION
  Report Type: 
  Country: None (occurrence: None)
  Receive Date: 20060406
  Receipt Date: 20050126
  Transmission Date: 20061013
  Serious: Yes (Hospitalization, Other)
  Sender: FDA-Public Use
  Company Number: US-MERCK-0501USA04337

PATIENT
  Age: 50 Year
  Sex: Male

DRUGS (5)
  1. VIOXX [Suspect]
     Route: 048
     Dates: start: 20001001, end: 20010801
  2. LAMICTAL [Concomitant]
     Indication: BIPOLAR I DISORDER
     Route: 065
  3. TRAZODONE HYDROCHLORIDE [Concomitant]
     Indication: SLEEP DISORDER
     Route: 065
  4. ENALAPRIL MALEATE [Concomitant]
     Indication: HYPERTENSION
     Route: 065
  5. PREVACID [Concomitant]
     Route: 065

REACTIONS (7)
  - ACUTE MYOCARDIAL INFARCTION [None]
  - AGITATION [None]
  - BIPOLAR DISORDER [None]
  - CEREBRAL INFARCTION [None]
  - CHEST PAIN [None]
  - HYPOAESTHESIA [None]
  - LACUNAR INFARCTION [None]
